FAERS Safety Report 12178945 (Version 21)
Quarter: 2021Q4

REPORT INFORMATION
  Report Type: Report from Study
  Country: CA (occurrence: CA)
  Receive Date: 20160315
  Receipt Date: 20211223
  Transmission Date: 20220303
  Serious: Yes (Death, Hospitalization, Other)
  Sender: FDA-Public Use
  Company Number: PHHY2015CA114863

PATIENT
  Age: 65 Year
  Sex: Female

DRUGS (5)
  1. SANDOSTATIN LAR DEPOT [Suspect]
     Active Substance: OCTREOTIDE ACETATE
     Indication: Neuroendocrine tumour
     Dosage: 30 MG, QMO (EVERY 4 WEEKS)
     Route: 030
     Dates: start: 20111218, end: 20161018
  2. SANDOSTATIN LAR DEPOT [Suspect]
     Active Substance: OCTREOTIDE ACETATE
     Dosage: 60 MG, QMO (EVERY 4 WEEKS)
     Route: 030
     Dates: start: 20161114
  3. SANDOSTATIN LAR DEPOT [Suspect]
     Active Substance: OCTREOTIDE ACETATE
     Dosage: 60 MG, (EVERY 3 WEEKS)
     Route: 030
     Dates: start: 20111218
  4. DOMPERIDONE [Concomitant]
     Active Substance: DOMPERIDONE
     Indication: Product used for unknown indication
     Dosage: 10 MG, PRN (MEAL)
     Route: 065
  5. MORPHINE [Concomitant]
     Active Substance: MORPHINE
     Indication: Product used for unknown indication
     Dosage: UNK, PRN (5-10 MG)
     Route: 048

REACTIONS (33)
  - Death [Fatal]
  - Dehydration [Unknown]
  - Intestinal obstruction [Unknown]
  - Flank pain [Unknown]
  - Eating disorder [Unknown]
  - Nausea [Unknown]
  - Decreased appetite [Unknown]
  - Abdominal pain [Unknown]
  - Pulmonary mass [Unknown]
  - Malignant neoplasm progression [Unknown]
  - Urinary retention [Unknown]
  - Neuroendocrine tumour [Unknown]
  - Gastrointestinal sounds abnormal [Unknown]
  - Full blood count increased [Unknown]
  - Urine analysis abnormal [Unknown]
  - Serum serotonin increased [Unknown]
  - Haematoma [Unknown]
  - Contusion [Unknown]
  - Asthenia [Recovering/Resolving]
  - Fatigue [Unknown]
  - Flatulence [Unknown]
  - Abdominal pain [Recovered/Resolved]
  - Diarrhoea [Recovered/Resolved]
  - Urine abnormality [Unknown]
  - Frequent bowel movements [Unknown]
  - Inguinal mass [Unknown]
  - Discomfort [Unknown]
  - Malaise [Unknown]
  - Abdominal distension [Unknown]
  - Needle issue [Unknown]
  - Underdose [Unknown]
  - Wrong technique in product usage process [Unknown]
  - Inappropriate schedule of product administration [Unknown]

NARRATIVE: CASE EVENT DATE: 20150921
